FAERS Safety Report 25719277 (Version 2)
Quarter: 2025Q4

REPORT INFORMATION
  Report Type: Spontaneous
  Country: US (occurrence: US)
  Receive Date: 20250824
  Receipt Date: 20251027
  Transmission Date: 20260117
  Serious: Yes (Other)
  Sender: SANOFI AVENTIS
  Company Number: US-SA-2025SA250728

PATIENT
  Sex: Female
  Weight: 60.18 kg

DRUGS (2)
  1. DUPIXENT [Suspect]
     Active Substance: DUPILUMAB
     Indication: Eosinophilic oesophagitis
     Dosage: 300 MG, QW
     Route: 058
  2. METFORMIN [Suspect]
     Active Substance: METFORMIN HYDROCHLORIDE

REACTIONS (6)
  - Choking [Unknown]
  - Product dose omission issue [Unknown]
  - Throat irritation [Unknown]
  - Throat tightness [Unknown]
  - Diarrhoea [Unknown]
  - Oropharyngeal pain [Unknown]
